FAERS Safety Report 14898075 (Version 2)
Quarter: 2018Q2

REPORT INFORMATION
  Report Type: Spontaneous
  Country: US (occurrence: US)
  Receive Date: 20180515
  Receipt Date: 20180516
  Transmission Date: 20180711
  Serious: Yes (Hospitalization)
  Sender: FDA-Public Use
  Company Number: US-ELI_LILLY_AND_COMPANY-US201805001601

PATIENT
  Age: 65 Year
  Sex: Female

DRUGS (7)
  1. HUMALOG [Suspect]
     Active Substance: INSULIN LISPRO
     Dosage: 2 IU, DAILY AT LUNCH
     Route: 058
     Dates: start: 201505
  2. HUMALOG [Suspect]
     Active Substance: INSULIN LISPRO
     Dosage: 4 IU, BID
     Route: 058
  3. HUMALOG [Suspect]
     Active Substance: INSULIN LISPRO
     Indication: PRODUCT USED FOR UNKNOWN INDICATION
     Dosage: 4 IU, ECAH IN MORNING AND EVENING
     Route: 058
     Dates: start: 201505
  4. HUMALOG [Suspect]
     Active Substance: INSULIN LISPRO
     Dosage: 2 IU, DAILY AT LUNCH
     Route: 058
  5. HUMALOG [Suspect]
     Active Substance: INSULIN LISPRO
     Dosage: 4 IU, BID
     Route: 058
  6. HUMALOG [Suspect]
     Active Substance: INSULIN LISPRO
     Dosage: 2 IU, DAILY AT LUNCH
     Route: 058
  7. HUMALOG [Suspect]
     Active Substance: INSULIN LISPRO
     Dosage: 4 IU, BID
     Route: 058

REACTIONS (9)
  - Injection site scar [Recovered/Resolved]
  - Sepsis [Not Recovered/Not Resolved]
  - Confusional state [Not Recovered/Not Resolved]
  - Injection site bruising [Not Recovered/Not Resolved]
  - Peripheral swelling [Recovered/Resolved]
  - Accidental underdose [Not Recovered/Not Resolved]
  - Accidental underdose [Unknown]
  - Injection site haemorrhage [Recovered/Resolved]
  - Fatigue [Not Recovered/Not Resolved]

NARRATIVE: CASE EVENT DATE: 20180503
